FAERS Safety Report 6698088-0 (Version None)
Quarter: 2010Q2

REPORT INFORMATION
  Report Type: 
  Country: None (occurrence: None)
  Receive Date: 20100427
  Receipt Date: 20100416
  Transmission Date: 20101027
  Serious: Yes (Hospitalization)
  Sender: FDA-Public Use
  Company Number: US-JNJFOC-20100405574

PATIENT
  Sex: Female
  Weight: 87.54 kg

DRUGS (9)
  1. REMICADE [Suspect]
     Indication: CROHN'S DISEASE
     Route: 042
  2. REMICADE [Suspect]
     Route: 042
  3. TRAMADOL HCL [Concomitant]
     Indication: FIBROMYALGIA
  4. ZYRTEC [Concomitant]
  5. OMEPRAZOLE [Concomitant]
     Indication: GASTROOESOPHAGEAL REFLUX DISEASE
  6. METOCLOPRAMIDE HYDROCHLORDIE [Concomitant]
     Indication: IMPAIRED GASTRIC EMPTYING
  7. SLOW RELEASE IRON [Concomitant]
     Indication: ANAEMIA
  8. STEROIDS NOS [Concomitant]
     Indication: PREMEDICATION
  9. HYDROCHLOROTHIAZIDE [Concomitant]

REACTIONS (3)
  - FLUSHING [None]
  - INFUSION RELATED REACTION [None]
  - RESPIRATORY DISORDER [None]
